FAERS Safety Report 14862196 (Version 1)
Quarter: 2018Q2

REPORT INFORMATION
  Report Type: Spontaneous
  Country: US (occurrence: US)
  Receive Date: 20180508
  Receipt Date: 20180508
  Transmission Date: 20180711
  Serious: No
  Sender: FDA-Public Use
  Company Number: US-BIOGEN-2018BI00568451

PATIENT
  Age: 8 Year
  Sex: Female

DRUGS (1)
  1. SPINRAZA [Suspect]
     Active Substance: NUSINERSEN
     Indication: SPINAL MUSCULAR ATROPHY
     Dosage: LOADING DOSES: FIRST 3 EVERY 14 DAYS; 4TH ONCE AFTER 30 DAYS.?MAINTENANCE DOSES: Q 4 MONTHS.
     Route: 037
     Dates: start: 20170921

REACTIONS (1)
  - X-ray abnormal [Recovered/Resolved]

NARRATIVE: CASE EVENT DATE: 20180425
